FAERS Safety Report 5620497-9 (Version None)
Quarter: 2008Q1

REPORT INFORMATION
  Report Type: 
  Country: None (occurrence: None)
  Receive Date: 20080208
  Receipt Date: 20080207
  Transmission Date: 20080703
  Serious: Yes (Death)
  Sender: FDA-Public Use
  Company Number: US-BOEHRINGER INGELHEIM GMBH, GERMANY-2008-DE-00788GD

PATIENT
  Age: 52 Year
  Sex: Female

DRUGS (4)
  1. SERTRALINE [Suspect]
  2. HYDROCODONE BITARTRATE [Suspect]
  3. AMITRIPTYLINE HCL [Suspect]
  4. DIPHENHYDRAMINE HCL [Suspect]

REACTIONS (1)
  - DRUG TOXICITY [None]
